FAERS Safety Report 5945192-8 (Version None)
Quarter: 2008Q4

REPORT INFORMATION
  Report Type: 
  Country: None (occurrence: None)
  Receive Date: 20081107
  Receipt Date: 20081031
  Transmission Date: 20090506
  Serious: Yes (Other)
  Sender: FDA-Public Use
  Company Number: B0545044A

PATIENT
  Age: 61 Year
  Sex: Female

DRUGS (6)
  1. KIVEXA [Suspect]
     Indication: HIV INFECTION
     Route: 065
     Dates: end: 20070619
  2. EPIVIR [Suspect]
     Indication: HIV INFECTION
     Route: 065
     Dates: start: 20040915, end: 20060117
  3. ZIAGEN [Suspect]
     Indication: HIV INFECTION
     Route: 065
     Dates: start: 20040915, end: 20060117
  4. TELZIR [Suspect]
     Indication: HIV INFECTION
     Route: 048
     Dates: start: 20040915, end: 20070619
  5. NORVIR [Suspect]
     Indication: HIV INFECTION
     Route: 048
     Dates: start: 20040915, end: 20070619
  6. VIDEX [Suspect]
     Indication: HIV INFECTION
     Route: 048
     Dates: start: 20040915, end: 20070619

REACTIONS (1)
  - PANCREATIC DISORDER [None]
